FAERS Safety Report 4686121-7 (Version None)
Quarter: 2005Q2

REPORT INFORMATION
  Report Type: 
  Country: None (occurrence: None)
  Receive Date: 20050606
  Receipt Date: 20050526
  Transmission Date: 20051028
  Serious: Yes (Hospitalization)
  Sender: FDA-Public Use
  Company Number: 106570ISR

PATIENT
  Age: 41 Year
  Sex: Male

DRUGS (3)
  1. GLATIRAMER ACETATE [Suspect]
     Dosage: 20 MILLIGRAM, SUBCUTANEOUS
     Route: 058
     Dates: start: 20011001, end: 20041001
  2. MICARDIS [Concomitant]
  3. ZOLPIDEM [Concomitant]

REACTIONS (7)
  - ABDOMINAL PAIN [None]
  - INJECTION SITE ERYTHEMA [None]
  - INJECTION SITE NECROSIS [None]
  - INJECTION SITE PAIN [None]
  - INJECTION SITE VESICLES [None]
  - MUSCLE SPASMS [None]
  - RASH VESICULAR [None]
